FAERS Safety Report 12715468 (Version 1)
Quarter: 2016Q3

REPORT INFORMATION
  Report Type: Report from Study
  Country: US (occurrence: US)
  Receive Date: 20160906
  Receipt Date: 20160906
  Transmission Date: 20161109
  Serious: Yes (Hospitalization, Other)
  Sender: FDA-Public Use
  Company Number: US-ROCHE-783544

PATIENT
  Age: 57 Year
  Sex: Male

DRUGS (19)
  1. BEVACIZUMAB [Suspect]
     Active Substance: BEVACIZUMAB
     Dosage: ANEMIA,ASPARTATE AMINOTRANSFERASE INCREASED, CONSTIPATION, CREATININE INCREASED, DIARRHEA (GRADE 2),
     Route: 042
  2. IXABEPILONE [Suspect]
     Active Substance: IXABEPILONE
     Route: 042
  3. IXABEPILONE [Suspect]
     Active Substance: IXABEPILONE
     Route: 042
  4. BEVACIZUMAB [Suspect]
     Active Substance: BEVACIZUMAB
     Dosage: ALANINE AMINOTRANSFERASE INCREASED, ALLERGIC RHINITIS, ANEMIA, ASPARTATE AMINOTRANSFERASE INCREASED,
     Route: 042
  5. BEVACIZUMAB [Suspect]
     Active Substance: BEVACIZUMAB
     Dosage: ANEMIA, BLOOD BILIRUBIN INCREASED (GRADE 2), FATIGUE (GRADE 2), HYPOALBUMINEMIA, HYPOMAGNESEMIA, LYM
     Route: 042
  6. BEVACIZUMAB [Suspect]
     Active Substance: BEVACIZUMAB
     Dosage: ANEMIA, ASPARTATE AMINOTRANSFERASE INCREASED, CREATININE INCREASED, DIARRHEA (GRADE 2), HYPERKALEMIA
     Route: 042
  7. IXABEPILONE [Suspect]
     Active Substance: IXABEPILONE
     Route: 042
  8. IXABEPILONE [Suspect]
     Active Substance: IXABEPILONE
     Route: 042
  9. IXABEPILONE [Suspect]
     Active Substance: IXABEPILONE
     Route: 042
  10. BEVACIZUMAB [Suspect]
     Active Substance: BEVACIZUMAB
     Dosage: ALANINE AMINOTRANSFERASE INCREASED, ALLERGIC RHINITIS, CREATININE INCREASED, DIARRHEA, DYSGEUSIA, FA
     Route: 042
  11. IXABEPILONE [Suspect]
     Active Substance: IXABEPILONE
     Indication: CLEAR CELL RENAL CELL CARCINOMA
     Dosage: IV OVER 1 HR ON DAYS 1-5, LAST DOSE:20 FEB 2011
     Route: 042
  12. BEVACIZUMAB [Suspect]
     Active Substance: BEVACIZUMAB
     Dosage: ANEMIA,ASPARTATE AMINOTRANSFERASE INCREASED, HYPERTENSION, HYPOALBUMINEMIA (GRADE 2), HYPONATREMIA,
     Route: 042
  13. BEVACIZUMAB [Suspect]
     Active Substance: BEVACIZUMAB
     Dosage: ACTIVATED PARTIAL THROMBOPLASTIN TIME PROLONGED, ARTHRALGIA, ASPARTATE AMINOTRANSFERASE INCREASED, C
     Route: 042
  14. IXABEPILONE [Suspect]
     Active Substance: IXABEPILONE
     Route: 042
  15. BEVACIZUMAB [Suspect]
     Active Substance: BEVACIZUMAB
     Dosage: ALANINE AMINOTRANSFERASE INCREASED, ANEMIA, ASPARTATE AMINOTRANSFERASE INCREASED, CREATININE INCREAS
     Route: 042
  16. IXABEPILONE [Suspect]
     Active Substance: IXABEPILONE
     Route: 042
  17. BEVACIZUMAB [Suspect]
     Active Substance: BEVACIZUMAB
     Indication: CLEAR CELL RENAL CELL CARCINOMA
     Dosage: ALLERGIC RHINITIS, ALOPECIA, ASPARTATE AMINOTRANSFERASE INCREASED, DIARRHEA, FATIGUE, HYPERGLYCEMIA,
     Route: 042
  18. BEVACIZUMAB [Suspect]
     Active Substance: BEVACIZUMAB
     Dosage: ACTIVATED PARTIAL THROMBOPLASTIN TIME PROLONGED, ALANINE AMINOTRANSFERASE INCREASED,ASPARTATE AMINOT
     Route: 042
  19. IXABEPILONE [Suspect]
     Active Substance: IXABEPILONE
     Route: 042

REACTIONS (4)
  - Diarrhoea [Unknown]
  - Presyncope [Recovered/Resolved]
  - Hypotension [Recovered/Resolved]
  - Syncope [Recovered/Resolved]

NARRATIVE: CASE EVENT DATE: 20110303
